FAERS Safety Report 8401567-9 (Version None)
Quarter: 2012Q2

REPORT INFORMATION
  Report Type: 
  Country: None (occurrence: None)
  Receive Date: 20120601
  Receipt Date: 20120529
  Transmission Date: 20120825
  Serious: Yes (Other)
  Sender: FDA-Public Use
  Company Number: PHHY2012GB039882

PATIENT
  Age: 36 Year
  Sex: Female

DRUGS (6)
  1. KALETRA [Suspect]
  2. FOLIC ACID [Concomitant]
     Dosage: 400 MG, UNK
  3. OMEPRAZOLE [Suspect]
  4. REYATAZ [Suspect]
  5. ABACAVIR SULFATE/LAMIVUDINE [Suspect]
     Dosage: 1 DF, UNK
  6. NEVIRAPINE [Suspect]

REACTIONS (2)
  - MATERNAL EXPOSURE DURING PREGNANCY [None]
  - VIRAL LOAD INCREASED [None]
